FAERS Safety Report 4680645-4 (Version None)
Quarter: 2005Q2

REPORT INFORMATION
  Report Type: 
  Country: None (occurrence: None)
  Receive Date: 20050531
  Receipt Date: 20050425
  Transmission Date: 20051028
  Serious: No
  Sender: FDA-Public Use
  Company Number: WAES 0504USA04380

PATIENT
  Age: 72 Year
  Sex: Female

DRUGS (2)
  1. ZETIA [Suspect]
     Indication: BLOOD CHOLESTEROL INCREASED
     Dosage: UNK/UNK/PO
     Route: 048
     Dates: start: 20020101
  2. (THERAPY UNSPECIFIED) [Concomitant]

REACTIONS (1)
  - GASTRIC DISORDER [None]
